FAERS Safety Report 19987066 (Version 1)
Quarter: 2021Q4

REPORT INFORMATION
  Report Type: Report from Study
  Country: US (occurrence: US)
  Receive Date: 20211022
  Receipt Date: 20211022
  Transmission Date: 20220303
  Serious: Yes (Other)
  Sender: FDA-Public Use
  Company Number: US-GLAXOSMITHKLINE-US2021AMR218817

PATIENT
  Sex: Female

DRUGS (17)
  1. BUPROPION HYDROCHLORIDE [Suspect]
     Active Substance: BUPROPION HYDROCHLORIDE
     Indication: Product used for unknown indication
     Dosage: UNK UNK, QD(150 MG) 1 IN 24 HOURS
     Route: 048
     Dates: start: 20200207
  2. DORZOLAMIDE HYDROCHLORIDE\TIMOLOL MALEATE [Suspect]
     Active Substance: DORZOLAMIDE HYDROCHLORIDE\TIMOLOL MALEATE
     Indication: Product used for unknown indication
     Dosage: UNK (2GTT 1 IN 12 HOUR)
     Dates: start: 20190712
  3. LORAZEPAM [Suspect]
     Active Substance: LORAZEPAM
     Indication: Anxiety
     Dosage: 1 MG, QD (1 IN 6 HOURS)
     Route: 048
     Dates: start: 20200305
  4. VENLAFAXINE HYDROCHLORIDE [Suspect]
     Active Substance: VENLAFAXINE HYDROCHLORIDE
     Indication: Product used for unknown indication
     Dosage: UNK
     Dates: start: 20200421
  5. TRULANCE [Suspect]
     Active Substance: PLECANATIDE
     Indication: Product used for unknown indication
     Dosage: UNK 3 MG
     Route: 048
     Dates: start: 20211001
  6. AMPHETAMINE\DEXTROAMPHETAMINE [Concomitant]
     Active Substance: AMPHETAMINE\DEXTROAMPHETAMINE
     Indication: Product used for unknown indication
     Dosage: UNK (10 MG TABLET)
     Route: 048
  7. AZITHROMYCIN ANHYDROUS [Concomitant]
     Active Substance: AZITHROMYCIN ANHYDROUS
     Indication: Product used for unknown indication
     Dosage: UNK (1 IN 24 HOURS)
     Route: 048
     Dates: start: 20200429
  8. CEFIXIME [Concomitant]
     Active Substance: CEFIXIME
     Indication: Product used for unknown indication
     Dosage: UNK  (400 MG 1 IN 24 HOURS)
     Dates: start: 20200429
  9. CYANOCOBALAMIN [Concomitant]
     Active Substance: CYANOCOBALAMIN
     Indication: Product used for unknown indication
     Dosage: UNK (1000 UG 1 IN 1 WEEK)
     Route: 058
     Dates: start: 20200429
  10. DONEPEZIL HYDROCHLORIDE [Concomitant]
     Active Substance: DONEPEZIL HYDROCHLORIDE
     Indication: Product used for unknown indication
     Dosage: UNK (5 MG TABLET 1 IN 24 HOUR)
     Route: 048
     Dates: start: 20200507
  11. GABAPENTIN [Concomitant]
     Active Substance: GABAPENTIN
     Indication: Product used for unknown indication
     Dosage: UNK (600 MG 1 IN 8 HR)
     Route: 048
     Dates: start: 20190719
  12. LEVOTHYROXINE SODIUM [Concomitant]
     Active Substance: LEVOTHYROXINE SODIUM
     Indication: Product used for unknown indication
     Dosage: UNK 25 UG 1 TABLET ORALLY EMPTY STOMACH
     Route: 048
     Dates: start: 20200526
  13. LIDOCAINE HYDROCHLORIDE [Concomitant]
     Active Substance: LIDOCAINE HYDROCHLORIDE
     Indication: Pain
     Dosage: UNK (1 IN 8 HR)
     Route: 061
     Dates: start: 20191112
  14. MEMANTINE HYDROCHLORIDE [Concomitant]
     Active Substance: MEMANTINE HYDROCHLORIDE
     Indication: Product used for unknown indication
     Dosage: UNK (10 MG 1 IN 12 HR)
     Route: 048
     Dates: start: 20200507
  15. MOVANTIK [Concomitant]
     Active Substance: NALOXEGOL OXALATE
     Indication: Product used for unknown indication
     Dosage: UNK (25 MG, 1IN 24 HR)
     Route: 048
     Dates: start: 20210226
  16. OXYCODONE AND ACETAMINOPHEN [Concomitant]
     Active Substance: ACETAMINOPHEN\OXYCODONE HYDROCHLORIDE
     Indication: Pain
     Dosage: UNK (10-325 MG 1 IN 4 HR)
     Route: 048
     Dates: start: 20200305
  17. VALACYCLOVIR HYDROCHLORIDE [Concomitant]
     Active Substance: VALACYCLOVIR HYDROCHLORIDE
     Indication: Product used for unknown indication
     Dosage: UNK (1 GM TABLET 1 IN 24 HR)
     Route: 048
     Dates: start: 20190528

REACTIONS (2)
  - Diarrhoea haemorrhagic [Recovered/Resolved]
  - Constipation [Unknown]
